FAERS Safety Report 6983344-9 (Version None)
Quarter: 2010Q3

REPORT INFORMATION
  Report Type: 
  Country: None (occurrence: None)
  Receive Date: 20100910
  Receipt Date: 20100827
  Transmission Date: 20110219
  Serious: Yes (Other)
  Sender: FDA-Public Use
  Company Number: 2010AP001823

PATIENT
  Age: 19 Year
  Sex: Female

DRUGS (5)
  1. MYCOPHENOLATE MOFETIL [Suspect]
     Indication: LUPUS NEPHRITIS
     Dosage: 2 GM
  2. MYCOPHENOLATE MOFETIL [Suspect]
     Indication: SYSTEMIC LUPUS ERYTHEMATOSUS
     Dosage: 2 GM
  3. TACROLIMUS [Suspect]
     Indication: LUPUS NEPHRITIS
     Dosage: 8 MG
  4. TACROLIMUS [Suspect]
     Indication: SYSTEMIC LUPUS ERYTHEMATOSUS
     Dosage: 8 MG
  5. PREDNISONE [Suspect]

REACTIONS (3)
  - ARTHRITIS BACTERIAL [None]
  - DIABETIC KETOACIDOSIS [None]
  - DRUG TOXICITY [None]
